FAERS Safety Report 7470495-8 (Version None)
Quarter: 2011Q2

REPORT INFORMATION
  Report Type: 
  Country: None (occurrence: None)
  Receive Date: 20110510
  Receipt Date: 20110428
  Transmission Date: 20111010
  Serious: Yes (Other)
  Sender: FDA-Public Use
  Company Number: US-ASTRAZENECA-2011SE09628

PATIENT
  Age: 16421 Day
  Sex: Male
  Weight: 81.4 kg

DRUGS (8)
  1. CELEXA [Concomitant]
  2. HYDROCHLOROTHIAZIDE [Concomitant]
  3. PROTONIX [Concomitant]
  4. FLOMAX [Concomitant]
  5. ARIXTRA [Concomitant]
  6. NEXIUM [Suspect]
     Indication: DYSPEPSIA
     Dosage: UNKNOWN DOSE DAILY
     Route: 048
  7. LISINOPRIL [Concomitant]
     Route: 048
  8. METOPROLOL SUCCINATE [Concomitant]

REACTIONS (9)
  - HYPERLIPIDAEMIA [None]
  - CHEST DISCOMFORT [None]
  - CANDIDIASIS [None]
  - OESOPHAGEAL CANCER METASTATIC [None]
  - BENIGN PROSTATIC HYPERPLASIA [None]
  - HYPERTENSION [None]
  - BACK PAIN [None]
  - GASTROOESOPHAGEAL REFLUX DISEASE [None]
  - DEPRESSION [None]
